FAERS Safety Report 10926585 (Version 4)
Quarter: 2015Q2

REPORT INFORMATION
  Report Type: Spontaneous
  Country: JP (occurrence: JP)
  Receive Date: 20150318
  Receipt Date: 20150525
  Transmission Date: 20150821
  Serious: Yes (Life-Threatening, Other)
  Sender: FDA-Public Use
  Company Number: PHJP2015JP001861

PATIENT
  Age: 80 Year
  Sex: Female
  Weight: 35 kg

DRUGS (8)
  1. AFINITOR [Suspect]
     Active Substance: EVEROLIMUS
     Dosage: 5 MG, QOD
     Dates: start: 20150127, end: 20150222
  2. AMARYL [Concomitant]
     Active Substance: GLIMEPIRIDE
     Indication: DIABETES MELLITUS
     Dosage: 1 MG, QD
     Route: 048
     Dates: start: 201312
  3. WELL BI [Concomitant]
     Indication: TACHYCARDIA
     Dosage: 2.5 MG, BID
     Route: 048
     Dates: start: 20150214
  4. TETUCUR S [Concomitant]
     Indication: ANAEMIA
     Dosage: 320 MG, QD
     Route: 048
     Dates: start: 201312
  5. WARFARIN [Suspect]
     Active Substance: WARFARIN
     Indication: ATRIAL FIBRILLATION
     Dosage: 1.25 MG, QD
     Route: 048
     Dates: start: 201312
  6. AFINITOR [Suspect]
     Active Substance: EVEROLIMUS
     Indication: METASTATIC RENAL CELL CARCINOMA
     Dosage: 5 MG, QOD
     Route: 048
     Dates: start: 20131218
  7. AMLODIPINE [Concomitant]
     Active Substance: AMLODIPINE BESYLATE
     Indication: HYPERTENSION
     Dosage: 2.5 MG, QD
     Route: 048
     Dates: start: 201312
  8. JANUVIA [Concomitant]
     Active Substance: SITAGLIPTIN PHOSPHATE
     Indication: DIABETES MELLITUS
     Dosage: 50 MG, QD
     Route: 048
     Dates: start: 201312

REACTIONS (10)
  - Haemorrhage subcutaneous [Unknown]
  - Cerebral haemorrhage [Recovered/Resolved with Sequelae]
  - Swelling [Unknown]
  - Anaemia [Unknown]
  - Fall [Recovered/Resolved with Sequelae]
  - Injury [Recovered/Resolved with Sequelae]
  - Depressed level of consciousness [Recovered/Resolved with Sequelae]
  - Hemiplegia [Unknown]
  - Contusion [Unknown]
  - Dysphagia [Unknown]

NARRATIVE: CASE EVENT DATE: 20150117
